FAERS Safety Report 4913681-0 (Version None)
Quarter: 2006Q1

REPORT INFORMATION
  Report Type: 
  Country: None (occurrence: None)
  Receive Date: 20060210
  Receipt Date: 20060207
  Transmission Date: 20060701
  Serious: Yes (Hospitalization)
  Sender: FDA-Public Use
  Company Number: TOR 2006-0006

PATIENT
  Age: 60 Year
  Sex: Female

DRUGS (2)
  1. FARESTON [Suspect]
     Indication: BREAST CANCER FEMALE
     Dosage: 80 MG (40 MG, 2 IN 1 D) ORAL
     Route: 048
     Dates: start: 20011121, end: 20041129
  2. TASUOMIN [Suspect]
     Indication: BREAST CANCER FEMALE
     Dosage: 20 MG (20 MG, 1 IN 1 D)
     Dates: start: 19990101, end: 20011121

REACTIONS (1)
  - OVARIAN GRANULOSA-THECA CELL TUMOUR [None]
